FAERS Safety Report 14101609 (Version 1)
Quarter: 2017Q4

REPORT INFORMATION
  Report Type: Spontaneous
  Country: US (occurrence: None)
  Receive Date: 20171018
  Receipt Date: 20171018
  Transmission Date: 20180321
  Serious: Yes (Hospitalization)
  Sender: FDA-Public Use
  Company Number: None

PATIENT
  Age: 60 Year
  Sex: Male
  Weight: 97 kg

DRUGS (2)
  1. CISPLATIN. [Suspect]
     Active Substance: CISPLATIN
     Dates: end: 20170918
  2. ETOPOSIDE (VP-16) [Suspect]
     Active Substance: ETOPOSIDE

REACTIONS (4)
  - Sepsis [None]
  - Neutrophil count decreased [None]
  - Asthenia [None]
  - Influenza [None]

NARRATIVE: CASE EVENT DATE: 20170929
